FAERS Safety Report 19271091 (Version 1)
Quarter: 2021Q2

REPORT INFORMATION
  Report Type: Spontaneous
  Country: US (occurrence: US)
  Receive Date: 20210518
  Receipt Date: 20210518
  Transmission Date: 20210717
  Serious: Yes (Hospitalization)
  Sender: FDA-Public Use
  Company Number: US-AMGEN-USASP2021072350

PATIENT
  Sex: Female

DRUGS (1)
  1. BLINCYTO [Suspect]
     Active Substance: BLINATUMOMAB
     Indication: B PRECURSOR TYPE ACUTE LEUKAEMIA
     Dosage: UNK
     Route: 065

REACTIONS (7)
  - Hypoaesthesia [Unknown]
  - Somnolence [Unknown]
  - Mental disorder [Unknown]
  - Lethargy [Unknown]
  - Social problem [Unknown]
  - Road traffic accident [Unknown]
  - Paraesthesia [Unknown]

NARRATIVE: CASE EVENT DATE: 202012
